FAERS Safety Report 10558690 (Version 3)
Quarter: 2015Q1

REPORT INFORMATION
  Report Type: Spontaneous
  Country: US (occurrence: US)
  Receive Date: 20141031
  Receipt Date: 20150204
  Transmission Date: 20150720
  Serious: No
  Sender: FDA-Public Use
  Company Number: US-PFIZER INC-2014300181

PATIENT
  Age: 59 Year
  Sex: Female

DRUGS (4)
  1. LYRICA [Suspect]
     Active Substance: PREGABALIN
     Indication: RHEUMATOID ARTHRITIS
  2. LYRICA [Suspect]
     Active Substance: PREGABALIN
     Indication: MYALGIA
     Dosage: 100 MG (1 CAPSULE), 4X/DAY
     Route: 048
     Dates: start: 2012
  3. LYRICA [Suspect]
     Active Substance: PREGABALIN
     Indication: MYOSITIS
  4. LYRICA [Suspect]
     Active Substance: PREGABALIN
     Indication: FIBROMYALGIA

REACTIONS (7)
  - Product use issue [Not Recovered/Not Resolved]
  - Reaction to colouring [Recovered/Resolved]
  - Irritability [Unknown]
  - Pruritus [Unknown]
  - Wheezing [Unknown]
  - Intentional product use issue [Unknown]
  - Urticaria [Unknown]

NARRATIVE: CASE EVENT DATE: 2012
